FAERS Safety Report 4555100-2 (Version None)
Quarter: 2004Q4

REPORT INFORMATION
  Report Type: 
  Country: None (occurrence: None)
  Receive Date: 20041217
  Receipt Date: 20040810
  Transmission Date: 20050328
  Serious: No
  Sender: FDA-Public Use
  Company Number: 2004-BP-05534BP

PATIENT
  Sex: Female

DRUGS (6)
  1. SPIRIVA [Suspect]
     Indication: ASTHMA
     Dosage: 18 MCG (18 MCG), IH
     Route: 055
  2. PRILOSEC [Concomitant]
  3. ALLEGRA [Concomitant]
  4. GUAIFENESIN (GUAIFENESIN) [Concomitant]
  5. PULMICORT [Concomitant]
  6. FLONASE [Concomitant]

REACTIONS (1)
  - THERAPEUTIC RESPONSE DECREASED [None]
